FAERS Safety Report 9643148 (Version 1)
Quarter: 2013Q4

REPORT INFORMATION
  Report Type: Spontaneous
  Country: UY (occurrence: UY)
  Receive Date: 20131024
  Receipt Date: 20131024
  Transmission Date: 20140711
  Serious: Yes (Hospitalization)
  Sender: FDA-Public Use
  Company Number: UY-B.I. PHARMACEUTICALS,INC./RIDGEFIELD-2013-BI-33244UE

PATIENT
  Age: 83 Year
  Sex: Female

DRUGS (1)
  1. PRADAXA [Suspect]
     Dosage: 300 MG
     Route: 048
     Dates: start: 201305, end: 201309

REACTIONS (7)
  - Convulsion [Recovered/Resolved]
  - Ischaemic stroke [Recovered/Resolved]
  - Haematoma [Recovered/Resolved]
  - General physical health deterioration [Not Recovered/Not Resolved]
  - Respiratory tract infection [Not Recovered/Not Resolved]
  - Urinary tract infection [Not Recovered/Not Resolved]
  - Gastrointestinal haemorrhage [Unknown]
